FAERS Safety Report 13265465 (Version 3)
Quarter: 2017Q2

REPORT INFORMATION
  Report Type: Spontaneous
  Country: US (occurrence: US)
  Receive Date: 20170223
  Receipt Date: 20170501
  Transmission Date: 20170830
  Serious: Yes (Hospitalization)
  Sender: FDA-Public Use
  Company Number: US-B.I. PHARMACEUTICALS,INC./RIDGEFIELD-2017-BI-009036

PATIENT
  Sex: Female
  Weight: 55.45 kg

DRUGS (1)
  1. SPIRIVA [Suspect]
     Active Substance: TIOTROPIUM BROMIDE MONOHYDRATE
     Indication: PRODUCT USED FOR UNKNOWN INDICATION
     Dosage: ONE CAPSULE DAILY;  FORM STRENGTH: 18 MCG; FORMULATION: CAPSULE? ADMINISTRATION CORRECT? NR(NOT REPO
     Route: 055
     Dates: start: 2016

REACTIONS (7)
  - Dyspnoea [Unknown]
  - Dizziness [Unknown]
  - Arrhythmia [Unknown]
  - Blood pressure decreased [Unknown]
  - Dizziness postural [Unknown]
  - Cardiac discomfort [Unknown]
  - Chest pain [Recovered/Resolved]
